FAERS Safety Report 5472569-X (Version None)
Quarter: 2007Q4

REPORT INFORMATION
  Report Type: 
  Country: None (occurrence: None)
  Receive Date: 20071001
  Receipt Date: 20060829
  Transmission Date: 20080405
  Serious: No
  Sender: FDA-Public Use
  Company Number: US-ASTRAZENECA-2006UW14813

PATIENT
  Age: 69 Year
  Sex: Female

DRUGS (3)
  1. ARIMIDEX [Suspect]
     Indication: BREAST CANCER IN SITU
     Route: 048
     Dates: start: 20040301
  2. ACTONEL [Concomitant]
  3. LEVOTHYROXINE SODIUM [Concomitant]

REACTIONS (7)
  - BLOOD TESTOSTERONE INCREASED [None]
  - CALCIUM DEFICIENCY [None]
  - HAEMORRHAGE [None]
  - HAIR GROWTH ABNORMAL [None]
  - HOT FLUSH [None]
  - OSTEOPENIA [None]
  - WEIGHT LOSS POOR [None]
